FAERS Safety Report 8440329-3 (Version None)
Quarter: 2012Q2

REPORT INFORMATION
  Report Type: 
  Country: None (occurrence: None)
  Receive Date: 20120615
  Receipt Date: 20120605
  Transmission Date: 20120825
  Serious: Yes (Hospitalization, Other)
  Sender: FDA-Public Use
  Company Number: US-ROCHE-689582

PATIENT
  Sex: Female

DRUGS (1)
  1. CELLCEPT [Suspect]
     Indication: PRODUCT USED FOR UNKNOWN INDICATION
     Dates: start: 20091008

REACTIONS (7)
  - SEPSIS [None]
  - CELLULITIS [None]
  - MYOCARDIAL INFARCTION [None]
  - GANGRENE [None]
  - PERIPHERAL ARTERIAL OCCLUSIVE DISEASE [None]
  - INTENSIVE CARE [None]
  - NECROSIS [None]
